FAERS Safety Report 9479161 (Version 1)
Quarter: 2013Q3

REPORT INFORMATION
  Report Type: Spontaneous
  Country: GB (occurrence: GB)
  Receive Date: 20130827
  Receipt Date: 20130827
  Transmission Date: 20140515
  Serious: Yes (Other)
  Sender: FDA-Public Use
  Company Number: ALCN2013GB004320

PATIENT
  Sex: 0

DRUGS (2)
  1. DUOTRAV APS [Suspect]
     Indication: GLAUCOMA
     Dosage: UNK GTT, UNK
     Route: 047
  2. AZOPT [Suspect]
     Indication: GLAUCOMA
     Dosage: UNK GTT, UNK
     Route: 047

REACTIONS (1)
  - Bradycardia [Unknown]
